FAERS Safety Report 21096524 (Version 2)
Quarter: 2022Q3

REPORT INFORMATION
  Report Type: Spontaneous
  Country: GB (occurrence: GB)
  Receive Date: 20220718
  Receipt Date: 20220801
  Transmission Date: 20221026
  Serious: Yes (Disabling)
  Sender: FDA-Public Use
  Company Number: None

PATIENT
  Age: 58 Year
  Sex: Female
  Weight: 94 kg

DRUGS (2)
  1. DICLOFENAC [Suspect]
     Active Substance: DICLOFENAC
     Indication: Spondylitis
     Dates: start: 20211004, end: 20220614
  2. OLMESARTAN [Concomitant]
     Active Substance: OLMESARTAN
     Indication: Diastolic hypertension

REACTIONS (2)
  - Gastrointestinal pain [Unknown]
  - Diarrhoea [Recovered/Resolved]
